FAERS Safety Report 12847594 (Version 1)
Quarter: 2016Q4

REPORT INFORMATION
  Report Type: Spontaneous
  Country: US (occurrence: US)
  Receive Date: 20161013
  Receipt Date: 20161013
  Transmission Date: 20170207
  Serious: Yes (Hospitalization)
  Sender: FDA-Public Use
  Company Number: None

PATIENT
  Age: 47 Year
  Sex: Female
  Weight: 60.1 kg

DRUGS (11)
  1. CLONAZEPAM. [Concomitant]
     Active Substance: CLONAZEPAM
  2. ENOXAPARIN [Concomitant]
     Active Substance: ENOXAPARIN
  3. MAGNESIUM OXIDE. [Concomitant]
     Active Substance: MAGNESIUM OXIDE
  4. PASIREOTIDE [Suspect]
     Active Substance: PASIREOTIDE
     Indication: POLYCYSTIC LIVER DISEASE
     Dosage: OTHER FREQUENCY:EVERY 28 DAYS;?
     Route: 030
     Dates: start: 20150414, end: 20160801
  5. DULCOLAX NOS [Concomitant]
     Active Substance: BISACODYL OR DOCUSATE SODIUM
  6. LORAZEPAM. [Concomitant]
     Active Substance: LORAZEPAM
  7. SENNA-DOCUSATE SODIUM [Concomitant]
  8. IBUPROFEN. [Concomitant]
     Active Substance: IBUPROFEN
  9. RANITIDINE [ZANTAC] [Concomitant]
  10. ACETAMINOPHEN. [Concomitant]
     Active Substance: ACETAMINOPHEN
  11. GRANISETRON [Concomitant]
     Active Substance: GRANISETRON

REACTIONS (4)
  - Pain [None]
  - Pleural effusion [None]
  - Pyrexia [None]
  - Intra-abdominal fluid collection [None]

NARRATIVE: CASE EVENT DATE: 20160928
